FAERS Safety Report 4668592-5 (Version None)
Quarter: 2005Q2

REPORT INFORMATION
  Report Type: 
  Country: None (occurrence: None)
  Receive Date: 20050523
  Receipt Date: 20040827
  Transmission Date: 20051028
  Serious: Yes (Other)
  Sender: FDA-Public Use
  Company Number: PHNU2004DE03038

PATIENT
  Sex: Female
  Weight: 50 kg

DRUGS (2)
  1. ZOMETA [Suspect]
     Indication: METASTASES TO BONE
     Dosage: 5 MG, QMO
     Dates: start: 20040401
  2. ACTONEL [Suspect]
     Indication: METASTASES TO BONE
     Dosage: 35 MG, QW
     Route: 048

REACTIONS (2)
  - BLOOD ALKALINE PHOSPHATASE INCREASED [None]
  - OSTEONECROSIS [None]
